FAERS Safety Report 8562452 (Version 2)
Quarter: 2012Q4

REPORT INFORMATION
  Report Type: 
  Country: US (occurrence: US)
  Receive Date: 20120515
  Receipt Date: 20121026
  Transmission Date: 20130627
  Serious: Yes (Hospitalization, Disabling)
  Sender: FDA-Public Use
  Company Number: US-BAYER-2012-046822

PATIENT
  Age: 27 Year
  Sex: Female
  Weight: 58.96 kg

DRUGS (23)
  1. YAZ [Suspect]
     Indication: CONTRACEPTION
     Dosage: UNK
     Dates: start: 20070705, end: 20090802
  2. YAZ [Suspect]
     Indication: CONTRACEPTION
     Dosage: UNK
  3. TYLENOL [Concomitant]
     Indication: HEADACHE
     Dosage: UNK
     Route: 048
     Dates: start: 200907
  4. IV FLUIDS [Concomitant]
     Route: 042
  5. ZOFRAN [Concomitant]
  6. MORPHINE [Concomitant]
  7. TORADOL [Concomitant]
  8. VICODIN [Concomitant]
  9. PROMETHAZINE [Concomitant]
  10. IV CAFFEINE [Concomitant]
     Route: 042
  11. ADVIL [Concomitant]
     Indication: HEADACHE
     Dosage: UNK
     Route: 048
     Dates: start: 200907
  12. IMITREX [Concomitant]
  13. PHENERGAN [Concomitant]
  14. DILAUDID [Concomitant]
  15. REGLAN [Concomitant]
  16. SCOPOLAMINE [Concomitant]
  17. FLEXERIL [Concomitant]
  18. SOLUMEDROL [Concomitant]
     Route: 042
  19. PEPCID [Concomitant]
  20. SENEKOT [Concomitant]
  21. OXYCODONE [Concomitant]
  22. MEDROL [Concomitant]
  23. IV STEROIDS [Concomitant]
     Route: 042

REACTIONS (25)
  - Intracranial venous sinus thrombosis [None]
  - Pain [None]
  - Injury [None]
  - General physical health deterioration [None]
  - General physical health deterioration [None]
  - Anxiety [None]
  - Emotional distress [None]
  - Headache [None]
  - Dizziness [None]
  - Vomiting [None]
  - Fear [None]
  - Swelling face [None]
  - Hyperacusis [None]
  - Hyperacusis [None]
  - Hyperreflexia [None]
  - Lacrimation increased [None]
  - Tinnitus [None]
  - Fatigue [None]
  - Balance disorder [None]
  - Memory impairment [None]
  - Dysphemia [None]
  - Clumsiness [None]
  - Paraesthesia [None]
  - Depression [None]
  - Vision blurred [None]
